FAERS Safety Report 18069267 (Version 2)
Quarter: 2021Q3

REPORT INFORMATION
  Report Type: Spontaneous
  Country: US (occurrence: US)
  Receive Date: 20200725
  Receipt Date: 20210825
  Transmission Date: 20211014
  Serious: No
  Sender: FDA-Public Use
  Company Number: US-ARBOR PHARMACEUTICALS, LLC-US-2020ARB000362

PATIENT
  Sex: Female

DRUGS (4)
  1. TRIPTODUR [Suspect]
     Active Substance: TRIPTORELIN
  2. TRIPTODUR [Suspect]
     Active Substance: TRIPTORELIN
     Indication: PRODUCT USED FOR UNKNOWN INDICATION
     Dosage: UNK, SINGLE
     Route: 030
     Dates: start: 20200228, end: 20200228
  3. TRIPTODUR [Suspect]
     Active Substance: TRIPTORELIN
     Dosage: UNK, SINGLE
     Route: 030
     Dates: start: 20200818, end: 20200818
  4. TRIPTODUR [Suspect]
     Active Substance: TRIPTORELIN

REACTIONS (6)
  - Weight increased [Not Recovered/Not Resolved]
  - Irritability [Unknown]
  - Mood altered [Not Recovered/Not Resolved]
  - Increased appetite [Unknown]
  - Alopecia [Unknown]
  - Crying [Unknown]

NARRATIVE: CASE EVENT DATE: 2020
